FAERS Safety Report 7973045-2 (Version None)
Quarter: 2011Q4

REPORT INFORMATION
  Report Type: 
  Country: None (occurrence: None)
  Receive Date: 20111213
  Receipt Date: 20111014
  Transmission Date: 20120403
  Serious: Yes (Other)
  Sender: FDA-Public Use
  Company Number: BR-PFIZER INC-2011247627

PATIENT
  Age: 75 Year
  Sex: Male

DRUGS (5)
  1. ATORVASTATIN CALCIUM [Suspect]
  2. SIMVASTATIN [Suspect]
  3. LIPITOR [Suspect]
  4. ATORVASTATIN CALCIUM [Suspect]
  5. VIAGRA [Concomitant]

REACTIONS (3)
  - ARTERIOSCLEROSIS [None]
  - CONSTIPATION [None]
  - CAROTID ARTERY OCCLUSION [None]
